FAERS Safety Report 8443532-1 (Version None)
Quarter: 2012Q2

REPORT INFORMATION
  Report Type: 
  Country: None (occurrence: None)
  Receive Date: 20120605
  Receipt Date: 20120530
  Transmission Date: 20120825
  Serious: Yes (Death)
  Sender: FDA-Public Use
  Company Number: 2012SP029252

PATIENT
  Age: 76 Year
  Sex: Female

DRUGS (1)
  1. TEMODAL [Suspect]
     Indication: GLIOBLASTOMA
     Dosage: 120 MG;QD;PO
     Route: 048
     Dates: start: 20111201, end: 20120122

REACTIONS (5)
  - RECTAL HAEMORRHAGE [None]
  - DYSPNOEA [None]
  - THROMBOCYTOPENIA [None]
  - APLASIA [None]
  - RENAL FAILURE [None]
